FAERS Safety Report 13638350 (Version 2)
Quarter: 2017Q2

REPORT INFORMATION
  Report Type: Spontaneous
  Country: US (occurrence: US)
  Receive Date: 20170609
  Receipt Date: 20170626
  Transmission Date: 20170830
  Serious: Yes (Hospitalization, Other)
  Sender: FDA-Public Use
  Company Number: US-AMGEN-USASP2017069168

PATIENT
  Age: 68 Year
  Sex: Male
  Weight: 81.92 kg

DRUGS (1)
  1. BLINCYTO [Suspect]
     Active Substance: BLINATUMOMAB
     Indication: ACUTE LYMPHOCYTIC LEUKAEMIA
     Dosage: UNK
     Route: 065
     Dates: start: 20170501

REACTIONS (8)
  - Metastases to bone [Unknown]
  - Pyrexia [Unknown]
  - Diverticulum intestinal [Unknown]
  - Hepatomegaly [Not Recovered/Not Resolved]
  - Abdominal mass [Unknown]
  - Blood bilirubin increased [Not Recovered/Not Resolved]
  - Cholelithiasis [Unknown]
  - Splenomegaly [Unknown]

NARRATIVE: CASE EVENT DATE: 20170501
